APPROVED DRUG PRODUCT: MULTIHANCE
Active Ingredient: GADOBENATE DIMEGLUMINE
Strength: 5.29GM/10ML (529MG/ML)
Dosage Form/Route: INJECTABLE;INTRAVENOUS
Application: N021357 | Product #002
Applicant: BRACCO DIAGNOSTICS INC
Approved: Nov 23, 2004 | RLD: Yes | RS: Yes | Type: RX